FAERS Safety Report 6197987-6 (Version None)
Quarter: 2009Q2

REPORT INFORMATION
  Report Type: 
  Country: None (occurrence: None)
  Receive Date: 20090521
  Receipt Date: 20090519
  Transmission Date: 20091009
  Serious: Yes (Death, Hospitalization)
  Sender: FDA-Public Use
  Company Number: US-JNJFOC-20090300651

PATIENT
  Sex: Female

DRUGS (2)
  1. RISPERDAL [Suspect]
     Indication: DRUG USE FOR UNKNOWN INDICATION
     Route: 048
  2. UNKNOWN ANTIDEPRESSANT [Concomitant]
     Route: 065

REACTIONS (11)
  - ARTERIOSCLEROSIS CORONARY ARTERY [None]
  - BLINDNESS [None]
  - BLOOD PRESSURE INCREASED [None]
  - CEREBROVASCULAR ACCIDENT [None]
  - DEMENTIA [None]
  - GASTROOESOPHAGEAL REFLUX DISEASE [None]
  - HEPATIC NEOPLASM MALIGNANT [None]
  - HYPOTHYROIDISM [None]
  - PNEUMONIA [None]
  - RENAL FAILURE ACUTE [None]
  - RENAL FAILURE CHRONIC [None]
